FAERS Safety Report 9593609 (Version 2)
Quarter: 2013Q4

REPORT INFORMATION
  Report Type: Spontaneous
  Country: US (occurrence: US)
  Receive Date: 20131004
  Receipt Date: 20131004
  Transmission Date: 20140711
  Serious: No
  Sender: FDA-Public Use
  Company Number: US-PURDUE-USA-2012-0088402

PATIENT
  Age: 70 Year
  Sex: Male

DRUGS (2)
  1. BUTRANS [Suspect]
     Indication: PAIN
     Dosage: 20 MCG/HR, UNK
     Route: 062
     Dates: start: 20120502, end: 20120524
  2. BUTRANS [Suspect]
     Dosage: 5 MCG/HR, 2 PATCHES TOTAL 10 MCG/HR
     Route: 062
     Dates: start: 20120524, end: 20120608

REACTIONS (5)
  - Drug effect increased [Unknown]
  - Disorientation [Recovered/Resolved]
  - Extra dose administered [Unknown]
  - Somnolence [Recovered/Resolved]
  - Sedation [Recovered/Resolved]
